FAERS Safety Report 8882646 (Version 1)
Quarter: 2012Q4

REPORT INFORMATION
  Report Type: 
  Country: AR (occurrence: AR)
  Receive Date: 20121102
  Receipt Date: 20121102
  Transmission Date: 20130627
  Serious: Yes (Death)
  Sender: FDA-Public Use
  Company Number: PHHY2012AR099671

PATIENT
  Age: 78 Year
  Sex: Male

DRUGS (2)
  1. DIOVAN [Suspect]
     Indication: HYPERTENSION
     Dosage: 0.5 DF 9160 mg) Daily
  2. DIOVAN [Suspect]
     Indication: ARTERIAL OCCLUSIVE DISEASE

REACTIONS (2)
  - Acute myocardial infarction [Fatal]
  - Wrong technique in drug usage process [Unknown]
